FAERS Safety Report 9505501 (Version 1)
Quarter: 2013Q1

REPORT INFORMATION
  Report Type: Spontaneous
  Country: US (occurrence: None)
  Receive Date: 20130225
  Receipt Date: 20130225
  Transmission Date: 20140127
  Serious: No
  Sender: FDA-Public Use
  Company Number: 367984

PATIENT
  Age: 54 Year
  Sex: Male

DRUGS (3)
  1. VICTOZA (LIRAGLUTIDE) SOLUTION FOR INJECTION [Suspect]
     Indication: TYPE 2 DIABETES MELLITUS
     Route: 058
     Dates: start: 20121119
  2. HUMALOG (INSULIN LISPRO) [Suspect]
  3. LANTUS (INSULIN GLARGINE) [Concomitant]

REACTIONS (1)
  - Increased appetite [None]
